FAERS Safety Report 21948618 (Version 1)
Quarter: 2023Q1

REPORT INFORMATION
  Report Type: Spontaneous
  Country: US (occurrence: US)
  Receive Date: 20230203
  Receipt Date: 20230203
  Transmission Date: 20230418
  Serious: Yes (Hospitalization)
  Sender: FDA-Public Use
  Company Number: US-JNJFOC-20221262839

PATIENT
  Age: 63 Year
  Sex: Male

DRUGS (1)
  1. NEOSPORIN [Suspect]
     Active Substance: BACITRACIN ZINC\NEOMYCIN SULFATE\POLYMYXIN B SULFATE
     Indication: Skin disorder
     Dosage: HE APPLIED IT LIBERALLY ALSO IN HIS INDEX FINGER SOMETIMES ONCE A DAY SOMETIMES TWICE
     Route: 061
     Dates: start: 20221210

REACTIONS (2)
  - Infection [Recovered/Resolved]
  - Product use in unapproved indication [Recovered/Resolved]

NARRATIVE: CASE EVENT DATE: 20221210
